FAERS Safety Report 25435032 (Version 2)
Quarter: 2025Q2

REPORT INFORMATION
  Report Type: Report from Study
  Country: CA (occurrence: CA)
  Receive Date: 20250613
  Receipt Date: 20250630
  Transmission Date: 20250717
  Serious: Yes (Death, Hospitalization)
  Sender: ABBVIE
  Company Number: CA-ABBVIE-6326034

PATIENT
  Age: 64 Year
  Sex: Male

DRUGS (1)
  1. SKYRIZI [Suspect]
     Active Substance: RISANKIZUMAB-RZAA
     Indication: Psoriasis
     Route: 058

REACTIONS (6)
  - Prostate cancer metastatic [Fatal]
  - Hepatic encephalopathy [Fatal]
  - Metastases to liver [Fatal]
  - Hypercalcaemia [Unknown]
  - White blood cell count increased [Unknown]
  - Delirium [Unknown]
